FAERS Safety Report 9156712 (Version 2)
Quarter: 2013Q2

REPORT INFORMATION
  Report Type: Spontaneous
  Country: US (occurrence: None)
  Receive Date: 20130211
  Receipt Date: 20130401
  Transmission Date: 20140414
  Serious: Yes (Hospitalization, Other)
  Sender: FDA-Public Use
  Company Number: 145063

PATIENT
  Age: 54 Year
  Sex: Male
  Weight: 94 kg

DRUGS (1)
  1. LEUCOVORIN CALCIUM [Suspect]
     Dates: start: 20121123, end: 20130118

REACTIONS (5)
  - Abdominal pain [None]
  - No therapeutic response [None]
  - Constipation [None]
  - Urinary retention [None]
  - X-ray gastrointestinal tract abnormal [None]
